FAERS Safety Report 20264522 (Version 1)
Quarter: 2021Q4

REPORT INFORMATION
  Report Type: Report from Study
  Country: US (occurrence: US)
  Receive Date: 20211231
  Receipt Date: 20211231
  Transmission Date: 20220304
  Serious: Yes (Other)
  Sender: FDA-Public Use
  Company Number: US-TAKEDA-2020TUS045524

PATIENT
  Sex: Female

DRUGS (1)
  1. VEDOLIZUMAB [Suspect]
     Active Substance: VEDOLIZUMAB
     Indication: Colitis ulcerative
     Dosage: 300 MILLIGRAM, Q4WEEKS
     Route: 042
     Dates: start: 20200528

REACTIONS (6)
  - Colitis ulcerative [Unknown]
  - Illness [Unknown]
  - Therapy interrupted [Unknown]
  - Therapy partial responder [Unknown]
  - Drug level decreased [Unknown]
  - Off label use [Unknown]
